FAERS Safety Report 9391310 (Version 1)
Quarter: 2013Q3

REPORT INFORMATION
  Report Type: Spontaneous
  Country: US (occurrence: None)
  Receive Date: 20130705
  Receipt Date: 20130705
  Transmission Date: 20140515
  Serious: Yes (Other)
  Sender: FDA-Public Use
  Company Number: SYM-2013-05229

PATIENT
  Age: 20 Month
  Sex: Male

DRUGS (1)
  1. XENAZINE [Suspect]
     Indication: BALLISMUS
     Route: 048

REACTIONS (1)
  - Creatinine urine increased [None]
